FAERS Safety Report 4911727-7 (Version None)
Quarter: 2006Q1

REPORT INFORMATION
  Report Type: 
  Country: None (occurrence: None)
  Receive Date: 20060213
  Receipt Date: 20060202
  Transmission Date: 20060701
  Serious: Yes (Hospitalization)
  Sender: FDA-Public Use
  Company Number: WAES  0507USA02027

PATIENT
  Age: 56 Year
  Sex: Male

DRUGS (14)
  1. DECADRON [Suspect]
     Dosage: PO; PO; PO
     Route: 048
     Dates: end: 20050531
  2. DECADRON [Suspect]
     Dosage: PO; PO; PO
     Route: 048
     Dates: start: 20050601, end: 20050601
  3. DECADRON [Suspect]
     Dosage: PO; PO; PO
     Route: 048
     Dates: start: 20050601
  4. BLINDED THERAPY [Suspect]
     Indication: GLIOBLASTOMA MULTIFORME
     Dates: start: 20050523, end: 20050527
  5. ATACAND HCT [Concomitant]
  6. ATIVAN [Concomitant]
  7. DILANTIN [Concomitant]
  8. DITROPAN XL [Concomitant]
  9. EFFEXOR [Concomitant]
  10. KEPPRA [Concomitant]
  11. RISPERDAL [Concomitant]
  12. SEROQUEL [Concomitant]
  13. ZANTAC [Concomitant]
  14. BACLOFEN [Concomitant]

REACTIONS (6)
  - BRAIN OEDEMA [None]
  - CEREBRAL VENTRICLE DILATATION [None]
  - DEPRESSED LEVEL OF CONSCIOUSNESS [None]
  - SOMNOLENCE [None]
  - URINARY TRACT INFECTION BACTERIAL [None]
  - WHITE BLOOD CELL COUNT INCREASED [None]
